FAERS Safety Report 5012897-5 (Version None)
Quarter: 2006Q2

REPORT INFORMATION
  Report Type: 
  Country: None (occurrence: None)
  Receive Date: 20060525
  Receipt Date: 20060525
  Transmission Date: 20061013
  Serious: Yes (Hospitalization)
  Sender: FDA-Public Use
  Company Number: None

PATIENT
  Age: 46 Year
  Sex: Male
  Weight: 54.8852 kg

DRUGS (8)
  1. ERBITUX [Suspect]
     Indication: NEOPLASM MALIGNANT
     Dosage: SEE IMAGE
     Route: 042
     Dates: start: 20060425
  2. CISPLATIN [Suspect]
     Dosage: SEE IMAGE
     Route: 042
     Dates: start: 20060502
  3. CISPLATIN [Suspect]
     Dosage: SEE IMAGE
     Route: 042
     Dates: start: 20060509
  4. CISPLATIN [Suspect]
     Dosage: SEE IMAGE
     Route: 042
     Dates: start: 20060524
  5. COLACE [Concomitant]
  6. ALBUTEROL [Concomitant]
  7. LORTAB [Concomitant]
  8. LOMOTIL [Concomitant]

REACTIONS (6)
  - ABDOMINAL PAIN [None]
  - CLOSTRIDIAL INFECTION [None]
  - DIARRHOEA [None]
  - FEEDING TUBE COMPLICATION [None]
  - NAUSEA [None]
  - VOMITING [None]
